FAERS Safety Report 12439690 (Version 5)
Quarter: 2018Q2

REPORT INFORMATION
  Report Type: Spontaneous
  Country: US (occurrence: US)
  Receive Date: 20160606
  Receipt Date: 20180601
  Transmission Date: 20180711
  Serious: Yes (Hospitalization, Other)
  Sender: FDA-Public Use
  Company Number: US-009507513-1606USA001667

PATIENT
  Sex: Female
  Weight: 141.95 kg

DRUGS (2)
  1. NUVARING [Suspect]
     Active Substance: ETHINYL ESTRADIOL\ETONOGESTREL
     Indication: CONTRACEPTION
     Dosage: 0.015MG-0.120MG : 1 Q4 WEEKS
     Route: 067
     Dates: start: 20140320, end: 20140604
  2. VITAMINS (UNSPECIFIED) [Concomitant]
     Active Substance: VITAMINS
     Dosage: 1 DF, QD
     Route: 048

REACTIONS (6)
  - Oedema peripheral [Unknown]
  - Type 2 diabetes mellitus [Unknown]
  - Deep vein thrombosis [Recovering/Resolving]
  - Chest pain [Unknown]
  - Pulmonary embolism [Recovering/Resolving]
  - Polycystic ovaries [Unknown]

NARRATIVE: CASE EVENT DATE: 201405
